FAERS Safety Report 10239708 (Version 3)
Quarter: 2015Q1

REPORT INFORMATION
  Report Type: Report from Study
  Country: US (occurrence: US)
  Receive Date: 20140616
  Receipt Date: 20150325
  Transmission Date: 20150720
  Serious: Yes (Hospitalization, Other)
  Sender: FDA-Public Use
  Company Number: US-GILEAD-2014-0105239

PATIENT
  Age: 66 Year
  Sex: Female

DRUGS (4)
  1. AMBRISENTAN [Suspect]
     Active Substance: AMBRISENTAN
     Indication: PULMONARY HYPERTENSION
     Dosage: 10 MG, QD
     Route: 065
     Dates: start: 20120314
  2. AMBRISENTAN [Suspect]
     Active Substance: AMBRISENTAN
     Indication: SCLERODERMA
  3. OXYGEN. [Concomitant]
     Active Substance: OXYGEN
  4. REMODULIN [Concomitant]
     Active Substance: TREPROSTINIL

REACTIONS (5)
  - Cardiac failure [Unknown]
  - Syncope [Unknown]
  - Oxygen consumption [Unknown]
  - Dizziness [Unknown]
  - Fluid retention [Unknown]

NARRATIVE: CASE EVENT DATE: 20140528
